FAERS Safety Report 5148057-7 (Version None)
Quarter: 2006Q4

REPORT INFORMATION
  Report Type: 
  Country: None (occurrence: None)
  Receive Date: 20061110
  Receipt Date: 20061031
  Transmission Date: 20070319
  Serious: Yes (Other)
  Sender: FDA-Public Use
  Company Number: PHEH2006US13652

PATIENT
  Age: 75 Year
  Sex: Female

DRUGS (1)
  1. ZOMETA [Suspect]
     Indication: METASTASES TO BONE
     Route: 042
     Dates: start: 20030101

REACTIONS (14)
  - BONE DEBRIDEMENT [None]
  - BONE PAIN [None]
  - BREATH ODOUR [None]
  - EMOTIONAL DISTRESS [None]
  - FACIAL PAIN [None]
  - GENERAL PHYSICAL HEALTH DETERIORATION [None]
  - GINGIVITIS [None]
  - IMPAIRED HEALING [None]
  - OPEN WOUND [None]
  - ORAL PAIN [None]
  - OSTEONECROSIS [None]
  - PAIN [None]
  - STOMATITIS NECROTISING [None]
  - TOOTH EXTRACTION [None]
